FAERS Safety Report 4754341-9 (Version None)
Quarter: 2005Q3

REPORT INFORMATION
  Report Type: 
  Country: None (occurrence: None)
  Receive Date: 20050825
  Receipt Date: 20050812
  Transmission Date: 20060218
  Serious: Yes (Other)
  Sender: FDA-Public Use
  Company Number: 2005117581

PATIENT
  Sex: Female
  Weight: 70.7611 kg

DRUGS (2)
  1. DETROL [Suspect]
     Indication: DYSURIA
     Dates: start: 20020101
  2. DETROL [Suspect]
     Indication: POLLAKIURIA
     Dates: start: 20020101

REACTIONS (7)
  - ANGINA PECTORIS [None]
  - CONDITION AGGRAVATED [None]
  - CONSTIPATION [None]
  - FAECES HARD [None]
  - GASTROINTESTINAL DISORDER [None]
  - MACULAR DEGENERATION [None]
  - PAINFUL DEFAECATION [None]
